FAERS Safety Report 10268365 (Version 1)
Quarter: 2014Q2

REPORT INFORMATION
  Report Type: Spontaneous
  Country: IT (occurrence: DE)
  Receive Date: 20140630
  Receipt Date: 20140630
  Transmission Date: 20141212
  Serious: Yes (Death)
  Sender: FDA-Public Use
  Company Number: DE-FRI-1000068567

PATIENT
  Age: 29 Year
  Sex: Male

DRUGS (1)
  1. NEBIVOLOL [Suspect]
     Dosage: 5 MG
     Dates: start: 201106, end: 20110914

REACTIONS (1)
  - Sudden death [Fatal]
